FAERS Safety Report 11784863 (Version 2)
Quarter: 2015Q4

REPORT INFORMATION
  Report Type: Spontaneous
  Country: JP (occurrence: JP)
  Receive Date: 20151130
  Receipt Date: 20151215
  Transmission Date: 20160305
  Serious: Yes (Other)
  Sender: FDA-Public Use
  Company Number: JP-ACCORD-035857

PATIENT
  Sex: Male

DRUGS (1)
  1. CISPLATIN. [Suspect]
     Active Substance: CISPLATIN
     Indication: OROPHARYNGEAL CANCER

REACTIONS (4)
  - Dehydration [Recovered/Resolved]
  - Polyuria [Recovered/Resolved]
  - Renal salt-wasting syndrome [Unknown]
  - Hyponatraemia [Recovered/Resolved]
